FAERS Safety Report 16968007 (Version 1)
Quarter: 2019Q4

REPORT INFORMATION
  Report Type: Report from Study
  Country: IT (occurrence: IT)
  Receive Date: 20191028
  Receipt Date: 20191028
  Transmission Date: 20200122
  Serious: Yes (Other)
  Sender: FDA-Public Use
  Company Number: IT-MYLANLABS-2019M1101237

PATIENT
  Sex: Female

DRUGS (8)
  1. PACLITAXEL. [Suspect]
     Active Substance: PACLITAXEL
     Dosage: 87.04 MILLIGRAM
     Route: 042
     Dates: start: 20181023
  2. RAMUCIRUMAB [Suspect]
     Active Substance: RAMUCIRUMAB
     Dosage: 360 MILLIGRAM
     Route: 042
     Dates: start: 20180904
  3. PACLITAXEL. [Suspect]
     Active Substance: PACLITAXEL
     Indication: GASTRIC CANCER
     Dosage: 90.24 MILLIGRAM
     Route: 042
     Dates: start: 20180206
  4. PACLITAXEL. [Suspect]
     Active Substance: PACLITAXEL
     Dosage: 87.04 MILLIGRAM
     Route: 042
     Dates: start: 20180502
  5. RAMUCIRUMAB [Suspect]
     Active Substance: RAMUCIRUMAB
     Dosage: 360 MILLIGRAM
     Route: 042
     Dates: start: 20181016, end: 20181227
  6. RAMUCIRUMAB [Suspect]
     Active Substance: RAMUCIRUMAB
     Dosage: 360 MILLIGRAM
     Route: 042
     Dates: start: 20180918
  7. PACLITAXEL. [Suspect]
     Active Substance: PACLITAXEL
     Dosage: 108.8 MILLIGRAM
     Route: 042
     Dates: start: 20181006
  8. RAMUCIRUMAB [Suspect]
     Active Substance: RAMUCIRUMAB
     Indication: GASTRIC CANCER
     Dosage: 360 MILLIGRAM
     Route: 042
     Dates: start: 20180724

REACTIONS (6)
  - Neutropenia [Recovered/Resolved]
  - Nausea [Not Recovered/Not Resolved]
  - Decreased appetite [Not Recovered/Not Resolved]
  - Anaemia [Recovered/Resolved]
  - Weight decreased [Not Recovered/Not Resolved]
  - Asthenia [Not Recovered/Not Resolved]

NARRATIVE: CASE EVENT DATE: 20181001
